FAERS Safety Report 5125070-7 (Version None)
Quarter: 2006Q4

REPORT INFORMATION
  Report Type: 
  Country: None (occurrence: None)
  Receive Date: 20061010
  Receipt Date: 20061010
  Transmission Date: 20070319
  Serious: No
  Sender: FDA-Public Use
  Company Number: None

PATIENT
  Age: 33 Year
  Sex: Female
  Weight: 58.9676 kg

DRUGS (6)
  1. SINGULAIR [Suspect]
     Indication: HYPERSENSITIVITY
     Dosage: 10MG DAILY PO
     Route: 048
  2. SYNTHROID [Concomitant]
  3. AVDAIR DISKUS [Concomitant]
  4. ALLEGRA-D 12 HOUR [Concomitant]
  5. IMMUNOTHERAPY [Concomitant]
  6. FLOVENT [Concomitant]

REACTIONS (2)
  - MUSCLE SPASMS [None]
  - MUSCULOSKELETAL STIFFNESS [None]
